FAERS Safety Report 6924394-8 (Version None)
Quarter: 2010Q3

REPORT INFORMATION
  Report Type: 
  Country: None (occurrence: None)
  Receive Date: 20100809
  Receipt Date: 20100727
  Transmission Date: 20110219
  Serious: Yes (Other)
  Sender: FDA-Public Use
  Company Number: AEUSA201000280

PATIENT
  Age: 36 Year
  Sex: Female
  Weight: 61.6892 kg

DRUGS (14)
  1. GAMUNEX [Suspect]
     Indication: MYASTHENIA GRAVIS
     Dosage: 70 GM;QM;IV
     Route: 042
     Dates: start: 20080101
  2. METHOTREXATE (CON.) [Concomitant]
  3. VITAMIN D NOS (CON.) [Concomitant]
  4. FOLATE (CON.) [Concomitant]
  5. PRENATAL VITAMINS/ 02014401/ (CON.) [Concomitant]
  6. CALCIUM (CON.) [Concomitant]
  7. NOVOLOG (CON.) [Concomitant]
  8. LEVOTHYROXINE (CON.) [Concomitant]
  9. VITAMIN B6 (CON.) [Concomitant]
  10. ISONIAZID (CON.) [Concomitant]
  11. PRILOSEC /00661203/ (CON.) [Concomitant]
  12. KLONOPIN (CON.) [Concomitant]
  13. NEBIVOLOL (CON.) [Concomitant]
  14. LISINOPRIL (CON.) [Concomitant]

REACTIONS (1)
  - TREPONEMA TEST POSITIVE [None]
